FAERS Safety Report 6022996-7 (Version None)
Quarter: 2008Q4

REPORT INFORMATION
  Report Type: 
  Country: None (occurrence: None)
  Receive Date: 20081222
  Receipt Date: 20080912
  Transmission Date: 20090506
  Serious: No
  Sender: FDA-Public Use
  Company Number: ALL1-2008-02601

PATIENT
  Age: 40 Year
  Sex: Male
  Weight: 61.7 kg

DRUGS (4)
  1. VYVANSE [Suspect]
     Indication: DEPRESSION
     Dosage: 50 MG, 1X/DAY:QD, ORAL
     Route: 048
     Dates: start: 20080909
  2. LEXAPRO [Concomitant]
  3. TRAZODONE HCL [Concomitant]
  4. LEVOTHROID [Concomitant]

REACTIONS (3)
  - DRUG INEFFECTIVE FOR UNAPPROVED INDICATION [None]
  - INTENTIONAL DRUG MISUSE [None]
  - OFF LABEL USE [None]
